FAERS Safety Report 13562010 (Version 1)
Quarter: 2017Q2

REPORT INFORMATION
  Report Type: Spontaneous
  Country: US (occurrence: US)
  Receive Date: 20170518
  Receipt Date: 20170518
  Transmission Date: 20170830
  Serious: Yes (Other)
  Sender: FDA-Public Use
  Company Number: PHHY2017US066636

PATIENT

DRUGS (9)
  1. DIAZEPAM. [Suspect]
     Active Substance: DIAZEPAM
     Indication: AGITATION
     Dosage: 0.1 MG/KG, UNK
     Route: 041
  2. FENTANYL. [Suspect]
     Active Substance: FENTANYL
     Indication: AGITATION
     Dosage: 1 UG/KG, QH
     Route: 041
  3. PHENOBARBITAL. [Suspect]
     Active Substance: PHENOBARBITAL
     Indication: AGITATION
     Dosage: 5 MG/KG, QD
     Route: 041
  4. METHADONE [Suspect]
     Active Substance: METHADONE HYDROCHLORIDE
     Indication: AGITATION
     Dosage: 0.15 MG/KG, Q6H
     Route: 041
  5. DEXMEDETOMIDINE. [Suspect]
     Active Substance: DEXMEDETOMIDINE
     Indication: AGITATION
     Dosage: 2 UG/KG, UNK
     Route: 041
  6. MORPHINE [Suspect]
     Active Substance: MORPHINE
     Indication: AGITATION
     Dosage: 50 UG/KG, UNK
     Route: 040
  7. MIDAZOLAM [Suspect]
     Active Substance: MIDAZOLAM HYDROCHLORIDE
     Indication: AGITATION
     Dosage: 1 UG/KG, UNK
     Route: 041
  8. LORAZEPAM. [Suspect]
     Active Substance: LORAZEPAM
     Indication: AGITATION
     Dosage: 0.1 MG/KG, UNK
     Route: 065
  9. GABAPENTIN. [Suspect]
     Active Substance: GABAPENTIN
     Indication: AGITATION
     Dosage: 5 MG/KG, Q8H
     Route: 041

REACTIONS (1)
  - Delirium [Recovered/Resolved]
